FAERS Safety Report 25169335 (Version 2)
Quarter: 2025Q2

REPORT INFORMATION
  Report Type: Spontaneous
  Country: US (occurrence: US)
  Receive Date: 20250407
  Receipt Date: 20250409
  Transmission Date: 20250717
  Serious: Yes (Life-Threatening, Other)
  Sender: PFIZER
  Company Number: US-PFIZER INC-PV202500039221

PATIENT
  Age: 15 Year
  Sex: Male

DRUGS (4)
  1. LIDOCAINE HYDROCHLORIDE [Suspect]
     Active Substance: LIDOCAINE HYDROCHLORIDE
     Indication: Local anaesthesia
  2. LIDOCAINE HYDROCHLORIDE [Suspect]
     Active Substance: LIDOCAINE HYDROCHLORIDE
     Indication: Pain
  3. KETAMINE [Concomitant]
     Active Substance: KETAMINE
     Indication: Pain
  4. MEXILETINE [Concomitant]
     Active Substance: MEXILETINE
     Indication: Pain
     Route: 048

REACTIONS (6)
  - Toxicity to various agents [Unknown]
  - Cardiogenic shock [Unknown]
  - Bradycardia [Unknown]
  - Hypotension [Unknown]
  - Hypertonia [Unknown]
  - Mental status changes [Unknown]
